FAERS Safety Report 6609602-5 (Version None)
Quarter: 2010Q1

REPORT INFORMATION
  Report Type: 
  Country: None (occurrence: None)
  Receive Date: 20100302
  Receipt Date: 20100217
  Transmission Date: 20100710
  Serious: Yes (Other)
  Sender: FDA-Public Use
  Company Number: JP-BRISTOL-MYERS SQUIBB COMPANY-14989347

PATIENT
  Age: 60 Year
  Sex: Male
  Weight: 43 kg

DRUGS (4)
  1. SPRYCEL [Suspect]
     Indication: CHRONIC MYELOID LEUKAEMIA
     Route: 048
     Dates: start: 20090417
  2. FLUDARABINE [Suspect]
     Indication: PREMEDICATION
  3. BUSULFEX [Suspect]
     Indication: PREMEDICATION
  4. RADIATION THERAPY [Suspect]

REACTIONS (3)
  - HISTIOCYTOSIS HAEMATOPHAGIC [None]
  - INFECTION [None]
  - THROMBOTIC MICROANGIOPATHY [None]
